FAERS Safety Report 25993298 (Version 1)
Quarter: 2025Q4

REPORT INFORMATION
  Report Type: Spontaneous
  Country: US (occurrence: US)
  Receive Date: 20251104
  Receipt Date: 20251104
  Transmission Date: 20260117
  Serious: No
  Sender: CELLTRION
  Company Number: US-CELLTRION INC.-2025US007820

PATIENT

DRUGS (2)
  1. INFLECTRA [Suspect]
     Active Substance: INFLIXIMAB-DYYB
     Indication: Sarcoidosis
     Dosage: UNK (100 MG VIAL)
     Route: 065
  2. INFLECTRA [Suspect]
     Active Substance: INFLIXIMAB-DYYB
     Indication: Arthritis

REACTIONS (2)
  - Sarcoidosis [Unknown]
  - Off label use [Unknown]
